FAERS Safety Report 5657494-3 (Version None)
Quarter: 2008Q1

REPORT INFORMATION
  Report Type: 
  Country: None (occurrence: None)
  Receive Date: 20080307
  Receipt Date: 20080307
  Transmission Date: 20080703
  Serious: Yes (Other)
  Sender: FDA-Public Use
  Company Number: None

PATIENT
  Age: 51 Year
  Sex: Male
  Weight: 85.4 kg

DRUGS (1)
  1. CHANTIX [Suspect]
     Indication: SMOKING CESSATION THERAPY
     Dosage: STARTER PACK AS DIRECEDTED PO 1MG TABLETS BID PO
     Route: 048
     Dates: start: 20071105, end: 20071203

REACTIONS (2)
  - CONDITION AGGRAVATED [None]
  - CONVULSION [None]
